FAERS Safety Report 8322698-8 (Version None)
Quarter: 2012Q2

REPORT INFORMATION
  Report Type: 
  Country: None (occurrence: None)
  Receive Date: 20120430
  Receipt Date: 20120425
  Transmission Date: 20120825
  Serious: No
  Sender: FDA-Public Use
  Company Number: FR-B.I. PHARMACEUTICALS,INC./RIDGEFIELD-2012-FF-00138FF

PATIENT
  Sex: Male
  Weight: 85 kg

DRUGS (4)
  1. ACETAMINOPHEN [Concomitant]
  2. MORPHINE [Concomitant]
  3. KETOPROFEN [Concomitant]
  4. PRADAXA [Suspect]
     Indication: HIP ARTHROPLASTY
     Dosage: 220 MG
     Route: 048
     Dates: start: 20111208, end: 20111210

REACTIONS (1)
  - THROMBOCYTOPENIA [None]
